FAERS Safety Report 8959550 (Version 2)
Quarter: 2013Q2

REPORT INFORMATION
  Report Type: Spontaneous
  Country: US (occurrence: US)
  Receive Date: 20121211
  Receipt Date: 20130523
  Transmission Date: 20140414
  Serious: Yes (Other)
  Sender: FDA-Public Use
  Company Number: US-009507513-1212USA002822

PATIENT
  Sex: Female
  Weight: 53.61 kg

DRUGS (1)
  1. IMPLANON [Suspect]
     Indication: CONTRACEPTION
     Dosage: 68 MG
     Route: 059
     Dates: start: 20111128, end: 20121205

REACTIONS (3)
  - Abortion [Recovered/Resolved]
  - Unintended pregnancy [Recovered/Resolved]
  - Menstruation irregular [Unknown]
